FAERS Safety Report 21664960 (Version 2)
Quarter: 2022Q4

REPORT INFORMATION
  Report Type: Report from Study
  Country: GB (occurrence: GB)
  Receive Date: 20221130
  Receipt Date: 20221207
  Transmission Date: 20230112
  Serious: Yes (Hospitalization, Other)
  Sender: FDA-Public Use
  Company Number: GB-BRISTOL-MYERS SQUIBB COMPANY-2022-144721

PATIENT
  Age: 60 Year
  Sex: Male
  Weight: 104 kg

DRUGS (20)
  1. IPILIMUMAB [Suspect]
     Active Substance: IPILIMUMAB
     Indication: Non-small cell lung cancer
     Dosage: PRIOR TO THE ONSET OF THE EVENT, THE PATIENT RECEIVED HIS MOST RECENT DOSE ON 16-SEP-2022.
     Route: 042
     Dates: start: 20220427
  2. CISPLATIN [Suspect]
     Active Substance: CISPLATIN
     Indication: Non-small cell lung cancer
     Dosage: PRIOR TO THE ONSET OF THE EVENT, THE PATIENT RECEIVED HIS MOST RECENT DOSE OF 185 MG ON 09-MAR-2022.
     Route: 065
     Dates: start: 20220216
  3. CISPLATIN [Suspect]
     Active Substance: CISPLATIN
     Route: 065
     Dates: start: 20220309
  4. ETOPOSIDE [Suspect]
     Active Substance: ETOPOSIDE
     Indication: Non-small cell lung cancer
     Route: 065
     Dates: start: 20220311
  5. ETOPOSIDE [Suspect]
     Active Substance: ETOPOSIDE
     Dosage: PRIOR TO THE ONSET OF THE EVENT, THE PATIENT RECEIVED HIS MOST RECENT DOSE OF 220 MG ON 11-MAR-2022.
     Route: 065
     Dates: start: 20220216
  6. LEVOTHYROXINE [Concomitant]
     Active Substance: LEVOTHYROXINE
     Indication: Hypothyroidism
     Dosage: DAILY; PER DAY
     Route: 048
     Dates: start: 20220521
  7. EDOXABAN [Concomitant]
     Active Substance: EDOXABAN
     Indication: Pulmonary embolism
     Dosage: DAILY; PER DAY
     Route: 048
     Dates: start: 20220831
  8. PREDNISOLONE [Concomitant]
     Active Substance: PREDNISOLONE
     Indication: Pneumonitis
     Dosage: DAILY; PER DAY
     Route: 048
     Dates: start: 20221025
  9. LANSOPRAZOLE [Concomitant]
     Active Substance: LANSOPRAZOLE
     Indication: Prophylaxis
     Dosage: DAILY; PER DAY
     Route: 048
     Dates: start: 20221025
  10. AMOXICILLIN SODIUM [Concomitant]
     Active Substance: AMOXICILLIN SODIUM
     Indication: Upper respiratory tract infection
     Dosage: 3 TIMES PER DAY
     Route: 048
     Dates: start: 20221025
  11. POLYETHYLENE GLYCOL 3350\POTASSIUM CHLORIDE\SODIUM BICARBONATE\SODIUM [Concomitant]
     Active Substance: POLYETHYLENE GLYCOL 3350\POTASSIUM CHLORIDE\SODIUM BICARBONATE\SODIUM CHLORIDE
     Indication: Constipation
     Dosage: DOSE: 1 UNIT NOT SPECIFIED?AS NEEDED
     Route: 048
     Dates: start: 20220221
  12. POLYETHYLENE GLYCOL 3350\POTASSIUM CHLORIDE\SODIUM BICARBONATE\SODIUM [Concomitant]
     Active Substance: POLYETHYLENE GLYCOL 3350\POTASSIUM CHLORIDE\SODIUM BICARBONATE\SODIUM CHLORIDE
     Dosage: DOSE: 1 UNIT NOT SPECIFIED?3 TIMES PER DAY
     Route: 048
     Dates: start: 20220419
  13. ANTACAINE [ALUMINIUM HYDROXIDE;MAGNESIUM CARBONATE;OXETACAINE] [Concomitant]
     Indication: Oesophagitis
     Dosage: DOSE: 10 UNITS NOT SPECIFIED?4 TIMES PER DAY
     Route: 048
     Dates: start: 20220314
  14. OMEPRAZOLE [Concomitant]
     Active Substance: OMEPRAZOLE
     Indication: Dyspepsia
     Dosage: DAILY; PER DAY
     Route: 048
     Dates: start: 20220315
  15. COCODAMOL [Concomitant]
     Active Substance: ACETAMINOPHEN\CODEINE PHOSPHATE
     Indication: Oesophagitis
     Dosage: 4 TIMES PER DAY
     Route: 048
     Dates: start: 20220321
  16. CETRABEN [LIGHT LIQUID PARAFFIN;WHITE SOFT PARAFFIN] [Concomitant]
     Indication: Rash
     Dosage: AS NEEDED
     Route: 061
     Dates: start: 20220224
  17. CETRABEN [LIGHT LIQUID PARAFFIN;WHITE SOFT PARAFFIN] [Concomitant]
     Dosage: AS NEEDED
     Route: 061
     Dates: start: 20220224
  18. DALTEPARIN [Concomitant]
     Active Substance: DALTEPARIN
     Indication: Pulmonary embolism
     Dosage: DOSE: 18000 UNITS NOT SPECIFIED?DAILY; PER DAY
     Route: 058
     Dates: start: 20220420
  19. PFIZER-BIONTECH COVID-19 VACCINE [Concomitant]
     Active Substance: TOZINAMERAN
     Indication: Prophylaxis
     Route: 030
     Dates: start: 20211129
  20. ASTRAZENECA COVID-19 VACCINE [Concomitant]
     Active Substance: AZD-1222
     Indication: Prophylaxis
     Route: 030
     Dates: start: 20220530

REACTIONS (1)
  - Pneumonia [Not Recovered/Not Resolved]

NARRATIVE: CASE EVENT DATE: 20221122
